FAERS Safety Report 5606121-X (Version None)
Quarter: 2008Q1

REPORT INFORMATION
  Report Type: 
  Country: None (occurrence: None)
  Receive Date: 20080123
  Receipt Date: 20080108
  Transmission Date: 20080703
  Serious: Yes (Death, Other)
  Sender: FDA-Public Use
  Company Number: 100#08#2008-00141

PATIENT
  Age: 25 Year
  Sex: Male

DRUGS (12)
  1. METHOTREXATE [Suspect]
     Indication: NERVOUS SYSTEM DISORDER
     Dosage: INTRAVENOUS, 3 X 12 MG INTRATHECAL, 12 MG INTRATHECAL
  2. METHOTREXATE [Suspect]
     Indication: NON-HODGKIN'S LYMPHOMA
     Dosage: INTRAVENOUS, 3 X 12 MG INTRATHECAL, 12 MG INTRATHECAL
  3. METHOTREXATE [Suspect]
     Indication: PROPHYLAXIS
     Dosage: INTRAVENOUS, 3 X 12 MG INTRATHECAL, 12 MG INTRATHECAL
  4. DOXORUBICIN HCL [Suspect]
     Indication: NON-HODGKIN'S LYMPHOMA
  5. CYTARABINE [Suspect]
     Indication: NERVOUS SYSTEM DISORDER
     Dosage: INTRAVENOUS, 2 X 100 MG INTRATHECAL, INTRAVENOUS, 100 MG INTRATHECAL
  6. CYTARABINE [Suspect]
     Indication: NON-HODGKIN'S LYMPHOMA
     Dosage: INTRAVENOUS, 2 X 100 MG INTRATHECAL, INTRAVENOUS, 100 MG INTRATHECAL
  7. CYTARABINE [Suspect]
     Indication: PROPHYLAXIS
     Dosage: INTRAVENOUS, 2 X 100 MG INTRATHECAL, INTRAVENOUS, 100 MG INTRATHECAL
  8. CYCLOPHOSPHAMIDE [Suspect]
     Indication: NON-HODGKIN'S LYMPHOMA
  9. VINCRISTINE [Suspect]
     Indication: NON-HODGKIN'S LYMPHOMA
  10. DEXAMETHASONE TAB [Suspect]
     Indication: NON-HODGKIN'S LYMPHOMA
  11. IDARUBICIN HCL [Suspect]
     Dosage: INTRAVENOUS
     Route: 042
  12. FLUDARABINE PHOSPHATE [Suspect]
     Dosage: INTRAVENOUS
     Route: 042

REACTIONS (11)
  - AREFLEXIA [None]
  - CEREBRAL HAEMORRHAGE [None]
  - CEREBRAL INFARCTION [None]
  - FEBRILE NEUTROPENIA [None]
  - GASTROINTESTINAL HAEMORRHAGE [None]
  - HAEMATURIA [None]
  - MYELOPATHY [None]
  - NON-HODGKIN'S LYMPHOMA RECURRENT [None]
  - PARALYSIS FLACCID [None]
  - SEPSIS [None]
  - STEM CELL TRANSPLANT [None]
